APPROVED DRUG PRODUCT: SULFASALAZINE
Active Ingredient: SULFASALAZINE
Strength: 500MG
Dosage Form/Route: TABLET, DELAYED RELEASE;ORAL
Application: A088052 | Product #001
Applicant: WATSON LABORATORIES INC
Approved: May 24, 1983 | RLD: No | RS: No | Type: DISCN